FAERS Safety Report 4430303-6 (Version None)
Quarter: 2004Q3

REPORT INFORMATION
  Report Type: 
  Country: None (occurrence: None)
  Receive Date: 20040816
  Receipt Date: 20040805
  Transmission Date: 20050211
  Serious: Yes (Other)
  Sender: FDA-Public Use
  Company Number: 2004-08-0248

PATIENT
  Age: 55 Year
  Sex: Male

DRUGS (1)
  1. MOMETASONE CREAM [Suspect]
     Indication: BLEPHARITIS
     Dosage: 0.1% TOP-DERM
     Route: 061

REACTIONS (5)
  - ASTHENOPIA [None]
  - CORNEAL OEDEMA [None]
  - INTRAOCULAR PRESSURE INCREASED [None]
  - VISION BLURRED [None]
  - VISUAL ACUITY REDUCED [None]
